FAERS Safety Report 6125251-X (Version None)
Quarter: 2009Q1

REPORT INFORMATION
  Report Type: 
  Country: None (occurrence: None)
  Receive Date: 20090319
  Receipt Date: 20090319
  Transmission Date: 20090719
  Serious: Yes (Other)
  Sender: FDA-Public Use
  Company Number: None

PATIENT
  Age: 28 Year
  Sex: Female
  Weight: 113 kg

DRUGS (11)
  1. ATAZANAVIR SULFATE [Suspect]
     Indication: HIV INFECTION
     Dosage: 300 MG QD ORAL
     Route: 048
     Dates: start: 20060621, end: 20090128
  2. NORVIR [Suspect]
     Indication: HIV INFECTION
     Dosage: 100 MG QD ORAL
     Route: 048
     Dates: start: 20060621, end: 20090128
  3. EPZICOM [Suspect]
     Indication: HIV INFECTION
     Dosage: 600/300 MG QD ORAL
     Route: 048
     Dates: start: 20060621, end: 20090128
  4. ALBUTEROL [Concomitant]
  5. CLARITIN-D [Concomitant]
  6. FLONASE [Concomitant]
  7. MINOCYCLINE HCL [Concomitant]
  8. UREA LOTION [Concomitant]
  9. VITAMIN AND MINERAL PRENATAL SUPPLEMENT W/ FOLIC ACID CAP [Concomitant]
  10. NORETHINDRONE [Concomitant]
  11. QUADRIVALENT HPV RECOMBINANT VACCINE [Concomitant]

REACTIONS (3)
  - ABORTION SPONTANEOUS [None]
  - DRUG EXPOSURE DURING PREGNANCY [None]
  - PREGNANCY [None]
